FAERS Safety Report 14091875 (Version 2)
Quarter: 2018Q1

REPORT INFORMATION
  Report Type: Report from Study
  Country: DE (occurrence: DE)
  Receive Date: 20171016
  Receipt Date: 20180221
  Transmission Date: 20180508
  Serious: Yes (Other)
  Sender: FDA-Public Use
  Company Number: PHHY2016DE079426

PATIENT
  Sex: Female
  Weight: 62.9 kg

DRUGS (5)
  1. EXEMESTANE. [Concomitant]
     Active Substance: EXEMESTANE
     Dosage: 25 MG, QD
     Route: 048
     Dates: start: 20150806
  2. EXEMESTANE. [Concomitant]
     Active Substance: EXEMESTANE
     Indication: BREAST CANCER METASTATIC
     Dosage: UNK
     Route: 048
     Dates: start: 20140731, end: 20150805
  3. AFINITOR [Suspect]
     Active Substance: EVEROLIMUS
     Indication: BREAST CANCER METASTATIC
     Dosage: 5 MG, QD
     Route: 048
     Dates: start: 20150806, end: 20170926
  4. XGEVA [Suspect]
     Active Substance: DENOSUMAB
     Indication: PROPHYLAXIS
     Dosage: 120 MG, QMO (1XMONTH)
     Route: 065
     Dates: start: 20140820, end: 20160428
  5. AFINITOR [Suspect]
     Active Substance: EVEROLIMUS
     Dosage: 5 MG, QD
     Route: 048
     Dates: start: 20171004

REACTIONS (3)
  - Osteomyelitis [Recovered/Resolved]
  - Onychoclasis [Not Recovered/Not Resolved]
  - Acquired macroglossia [Recovered/Resolved]

NARRATIVE: CASE EVENT DATE: 20160602
